FAERS Safety Report 5144996-1 (Version None)
Quarter: 2006Q4

REPORT INFORMATION
  Report Type: 
  Country: None (occurrence: None)
  Receive Date: 20061107
  Receipt Date: 20061026
  Transmission Date: 20070319
  Serious: Yes (Death, Other)
  Sender: FDA-Public Use
  Company Number: NL-BAYER-200615030GDS

PATIENT

DRUGS (1)
  1. APROTININ [Suspect]
     Indication: CORONARY ARTERY BYPASS

REACTIONS (4)
  - EMBOLISM [None]
  - HAEMORRHAGE [None]
  - MYOCARDIAL INFARCTION [None]
  - PROCEDURAL COMPLICATION [None]
